FAERS Safety Report 6336794-8 (Version None)
Quarter: 2009Q3

REPORT INFORMATION
  Report Type: 
  Country: None (occurrence: None)
  Receive Date: 20090901
  Receipt Date: 20090821
  Transmission Date: 20100115
  Serious: Yes (Death)
  Sender: FDA-Public Use
  Company Number: BR-ROCHE-651947

PATIENT
  Sex: Male

DRUGS (6)
  1. PEG-INTERFERON ALFA 2A (RO 25-8310) [Suspect]
     Indication: HEPATITIS C
     Route: 065
     Dates: start: 20080709
  2. RIBAVIRIN [Suspect]
     Indication: HEPATITIS C
     Dosage: FREQUENCY: DAILY
     Route: 065
     Dates: start: 20090709
  3. ENALAPRIL MALEATE [Concomitant]
     Dosage: FREQUENCY: DAILY
  4. MAREVAN [Concomitant]
     Dosage: DOSE: 2CAPS/DAY AND 2CAPS + 1/4CAP EVERY 2 DAYS
  5. ALDACTONE [Concomitant]
  6. PANTOZOL [Concomitant]

REACTIONS (1)
  - DEATH [None]
